FAERS Safety Report 9652271 (Version 1)
Quarter: 2013Q4

REPORT INFORMATION
  Report Type: Spontaneous
  Country: US (occurrence: None)
  Receive Date: 20131028
  Receipt Date: 20131028
  Transmission Date: 20140711
  Serious: Yes (Disabling)
  Sender: FDA-Public Use
  Company Number: None

PATIENT
  Age: 17 Year
  Sex: Female
  Weight: 49.9 kg

DRUGS (1)
  1. REGLAN [Suspect]
     Indication: VOMITING IN PREGNANCY
     Dosage: 1-2 FOUR TIMES DAILY
     Route: 048

REACTIONS (1)
  - Rapid eye movements sleep abnormal [None]
